FAERS Safety Report 6109592-8 (Version None)
Quarter: 2009Q1

REPORT INFORMATION
  Report Type: 
  Country: None (occurrence: None)
  Receive Date: 20090310
  Receipt Date: 20090227
  Transmission Date: 20090719
  Serious: Yes (Hospitalization, Other)
  Sender: FDA-Public Use
  Company Number: PHBS2007JP17860

PATIENT
  Age: 11 Month
  Sex: Female

DRUGS (4)
  1. TEGRETOL [Suspect]
     Indication: CONVULSION PROPHYLAXIS
     Route: 048
  2. PHENOBARBITAL TAB [Suspect]
     Indication: CONVULSION
     Route: 048
  3. POLYGAM S/D [Concomitant]
     Indication: ENCEPHALOPATHY
  4. ANALGESICS [Concomitant]
     Indication: ENCEPHALOPATHY
     Route: 042

REACTIONS (4)
  - DRUG RASH WITH EOSINOPHILIA AND SYSTEMIC SYMPTOMS [None]
  - LYMPHADENOPATHY [None]
  - PYREXIA [None]
  - RASH [None]
